FAERS Safety Report 17760452 (Version 2)
Quarter: 2020Q2

REPORT INFORMATION
  Report Type: Report from Study
  Country: CL (occurrence: CL)
  Receive Date: 20200508
  Receipt Date: 20200512
  Transmission Date: 20200714
  Serious: No
  Sender: FDA-Public Use
  Company Number: NVSC2020CL124945

PATIENT
  Age: 14 Year
  Weight: 32 kg

DRUGS (2)
  1. OMNITROPE [Suspect]
     Active Substance: SOMATROPIN
     Indication: GROWTH DISORDER
     Dosage: 1.4 MG
     Route: 065
     Dates: start: 20200122
  2. OMNITROPE [Suspect]
     Active Substance: SOMATROPIN
     Dosage: 1.5 MG
     Route: 065

REACTIONS (4)
  - Overdose [Unknown]
  - Growth disorder [Unknown]
  - Blister [Unknown]
  - Device malfunction [Unknown]

NARRATIVE: CASE EVENT DATE: 20200428
